FAERS Safety Report 7449030-6 (Version None)
Quarter: 2011Q2

REPORT INFORMATION
  Report Type: 
  Country: None (occurrence: None)
  Receive Date: 20110429
  Receipt Date: 20110422
  Transmission Date: 20111010
  Serious: Yes (Death, Life-Threatening, Hospitalization, Other)
  Sender: FDA-Public Use
  Company Number: US-RB-020985-11

PATIENT
  Sex: Female

DRUGS (5)
  1. SUBOXONE [Suspect]
     Indication: DRUG DEPENDENCE
     Route: 060
     Dates: start: 20080101, end: 20101201
  2. IBUPROFEN [Concomitant]
     Indication: PAIN
     Dosage: DOSE VARIES AS NEEDED
     Route: 065
  3. ROBAXIN [Concomitant]
     Indication: PAIN
     Dosage: DOSING DETAILS UNKNOWN
     Route: 065
     Dates: start: 20080101
  4. SUBOXONE [Suspect]
     Indication: DRUG DEPENDENCE
     Dosage: DOSE RANGED FROM 24-32 MG DAILY
     Route: 060
     Dates: start: 20101201, end: 20110310
  5. ANTIDEPRESSANT [Suspect]
     Indication: DEPRESSION
     Dosage: DOSING DETAILS UNKNOWN
     Route: 065
     Dates: start: 20100101, end: 20100101

REACTIONS (8)
  - HYPOVITAMINOSIS [None]
  - MEDICAL INDUCTION OF COMA [None]
  - NAUSEA [None]
  - OEDEMA PERIPHERAL [None]
  - VISION BLURRED [None]
  - DYSPNOEA [None]
  - CEREBROVASCULAR ACCIDENT [None]
  - SCOTOMA [None]
